FAERS Safety Report 7301700-6 (Version None)
Quarter: 2011Q1

REPORT INFORMATION
  Report Type: 
  Country: None (occurrence: None)
  Receive Date: 20110218
  Receipt Date: 20110211
  Transmission Date: 20110831
  Serious: Yes (Other)
  Sender: FDA-Public Use
  Company Number: B0700515A

PATIENT
  Sex: Female

DRUGS (3)
  1. ALLI [Suspect]
     Indication: PRODUCT USED FOR UNKNOWN INDICATION
     Route: 065
     Dates: start: 20110201, end: 20110201
  2. SOMAC [Concomitant]
     Indication: DYSPEPSIA
  3. MICARDIS [Concomitant]
     Indication: BLOOD PRESSURE

REACTIONS (1)
  - DIARRHOEA HAEMORRHAGIC [None]
